FAERS Safety Report 7634107-2 (Version None)
Quarter: 2011Q3

REPORT INFORMATION
  Report Type: 
  Country: None (occurrence: None)
  Receive Date: 20110725
  Receipt Date: 20110721
  Transmission Date: 20111222
  Serious: Yes (Other)
  Sender: FDA-Public Use
  Company Number: US-PFIZER INC-2011166443

PATIENT
  Age: 70 Year
  Sex: Male
  Weight: 122 kg

DRUGS (2)
  1. CARDURA [Suspect]
     Indication: PROSTATIC DISORDER
     Dosage: 2 MG, 1X/DAY
     Route: 048
     Dates: end: 20110501
  2. LIPITOR [Suspect]
     Indication: BLOOD CHOLESTEROL INCREASED
     Dosage: 20 MG, 1X/DAY
     Route: 048
     Dates: end: 20110520

REACTIONS (5)
  - MYALGIA [None]
  - SENSORY DISTURBANCE [None]
  - OEDEMA PERIPHERAL [None]
  - BURNING SENSATION [None]
  - MACULE [None]
